FAERS Safety Report 24913776 (Version 1)
Quarter: 2025Q1

REPORT INFORMATION
  Report Type: Report from Study
  Country: US (occurrence: US)
  Receive Date: 20250202
  Receipt Date: 20250202
  Transmission Date: 20250409
  Serious: Yes (Life-Threatening, Hospitalization, Disabling, Other)
  Sender: JOHNSON AND JOHNSON
  Company Number: US-JNJFOC-20250181547

PATIENT
  Age: 44 Year
  Sex: Female

DRUGS (2)
  1. SPRAVATO [Suspect]
     Active Substance: ESKETAMINE
     Indication: Depression
     Route: 045
     Dates: start: 20240624, end: 20241209
  2. SPRAVATO [Suspect]
     Active Substance: ESKETAMINE
     Route: 045
     Dates: start: 20241223, end: 20241223

REACTIONS (2)
  - End stage renal disease [Not Recovered/Not Resolved]
  - Dissociation [Recovered/Resolved]

NARRATIVE: CASE EVENT DATE: 20240101
